FAERS Safety Report 23659349 (Version 1)
Quarter: 2024Q1

REPORT INFORMATION
  Report Type: Spontaneous
  Country: US (occurrence: US)
  Receive Date: 20240321
  Receipt Date: 20240321
  Transmission Date: 20240410
  Serious: No
  Sender: FDA-Public Use
  Company Number: US-BRAEBURN-US-BRA-24-000092

PATIENT
  Age: 34 Year
  Sex: Female

DRUGS (1)
  1. BRIXADI [Suspect]
     Active Substance: BUPRENORPHINE
     Indication: Drug use disorder
     Dosage: 128 MILLIGRAM
     Route: 058
     Dates: start: 20231227, end: 20240122

REACTIONS (1)
  - Withdrawal syndrome [Unknown]

NARRATIVE: CASE EVENT DATE: 20240122
